FAERS Safety Report 5310161-8 (Version None)
Quarter: 2007Q2

REPORT INFORMATION
  Report Type: 
  Country: None (occurrence: None)
  Receive Date: 20070423
  Receipt Date: 20070405
  Transmission Date: 20071010
  Serious: Yes (Disabling)
  Sender: FDA-Public Use
  Company Number: 2007RR-06796

PATIENT
  Age: 21 Year
  Sex: Male

DRUGS (1)
  1. CIPROFLOXACIN [Suspect]
     Indication: GASTROINTESTINAL INFECTION
     Dosage: 500 MG, BID, ORAL
     Route: 048

REACTIONS (6)
  - ARTHRALGIA [None]
  - C-REACTIVE PROTEIN INCREASED [None]
  - JOINT STIFFNESS [None]
  - JOINT SWELLING [None]
  - NECK PAIN [None]
  - RED BLOOD CELL SEDIMENTATION RATE INCREASED [None]
